FAERS Safety Report 17144411 (Version 1)
Quarter: 2019Q4

REPORT INFORMATION
  Report Type: Spontaneous
  Country: SE (occurrence: SE)
  Receive Date: 20191212
  Receipt Date: 20191212
  Transmission Date: 20200122
  Serious: Yes (Hospitalization)
  Sender: FDA-Public Use
  Company Number: SE-TEVA-2019-SE-1148954

PATIENT
  Age: 25 Year
  Sex: Female

DRUGS (6)
  1. LAMOTRIGINE. [Suspect]
     Active Substance: LAMOTRIGINE
     Dosage: 1050 MG
     Route: 048
     Dates: start: 20180930, end: 20180930
  2. FLUOXETINE [Suspect]
     Active Substance: FLUOXETINE HYDROCHLORIDE
     Dosage: 280 MG
     Route: 048
     Dates: start: 20180930, end: 20180930
  3. OLANZAPINE. [Suspect]
     Active Substance: OLANZAPINE
     Dosage: 35 MG
     Route: 048
     Dates: start: 20180930, end: 20180930
  4. LEVAXIN [Suspect]
     Active Substance: LEVOTHYROXINE SODIUM
     Dosage: 350 MCG
     Route: 048
     Dates: start: 20180930, end: 20180930
  5. LERGIGAN (PROMETHAZINE HYDROCHLORIDE) [Suspect]
     Active Substance: PROMETHAZINE HYDROCHLORIDE
     Dosage: 750MG MAX
     Route: 048
     Dates: start: 20180930, end: 20180930
  6. THERALEN [Suspect]
     Active Substance: TRIMEPRAZINE
     Dosage: 2 G
     Route: 048
     Dates: start: 20180930, end: 20180930

REACTIONS (5)
  - Intentional overdose [Unknown]
  - Akathisia [Unknown]
  - Intentional self-injury [Unknown]
  - Depressed level of consciousness [Unknown]
  - Tachycardia [Unknown]

NARRATIVE: CASE EVENT DATE: 20180930
